FAERS Safety Report 5797661-1 (Version None)
Quarter: 2008Q3

REPORT INFORMATION
  Report Type: 
  Country: None (occurrence: None)
  Receive Date: 20080702
  Receipt Date: 20080624
  Transmission Date: 20090109
  Serious: Yes (Other)
  Sender: FDA-Public Use
  Company Number: GB-JNJFOC-20080605827

PATIENT
  Sex: Male
  Weight: 90 kg

DRUGS (6)
  1. REMICADE [Suspect]
     Indication: RHEUMATOID ARTHRITIS
  2. METHOTREXATE [Concomitant]
  3. PREDNISOLONE [Concomitant]
  4. DIDRONEL [Concomitant]
  5. FERROUS SULFATE TAB [Concomitant]
  6. LANSOPRAZOLE [Concomitant]

REACTIONS (1)
  - SKIN CANCER [None]
